FAERS Safety Report 18248373 (Version 1)
Quarter: 2020Q3

REPORT INFORMATION
  Report Type: Report from Study
  Country: CA (occurrence: CA)
  Receive Date: 20200909
  Receipt Date: 20200909
  Transmission Date: 20201103
  Serious: Yes (Other)
  Sender: FDA-Public Use
  Company Number: CA-JNJFOC-20190927618

PATIENT
  Age: 17 Year
  Sex: Female
  Weight: 58.6 kg

DRUGS (2)
  1. REMICADE [Suspect]
     Active Substance: INFLIXIMAB
     Indication: CROHN^S DISEASE
  2. REMICADE [Suspect]
     Active Substance: INFLIXIMAB
     Indication: JUVENILE IDIOPATHIC ARTHRITIS
     Route: 042
     Dates: start: 20170929

REACTIONS (10)
  - Feeling hot [Recovering/Resolving]
  - Joint stiffness [Not Recovered/Not Resolved]
  - Oedema peripheral [Recovered/Resolved]
  - Erythema [Recovering/Resolving]
  - Tooth infection [Unknown]
  - Tooth abscess [Unknown]
  - Abdominal pain [Recovered/Resolved]
  - Musculoskeletal stiffness [Unknown]
  - Haematochezia [Recovered/Resolved]
  - Wisdom teeth removal [Unknown]

NARRATIVE: CASE EVENT DATE: 20190916
